FAERS Safety Report 8860428 (Version 1)
Quarter: 2012Q4

REPORT INFORMATION
  Report Type: 
  Country: US (occurrence: US)
  Receive Date: 20121025
  Receipt Date: 20121025
  Transmission Date: 20130627
  Serious: No
  Sender: FDA-Public Use
  Company Number: US-PFIZER INC-2012265916

PATIENT
  Age: 46 Year
  Sex: Female
  Weight: 64.85 kg

DRUGS (1)
  1. RELPAX [Suspect]
     Indication: MIGRAINE
     Dosage: 40 mg, daily
     Route: 048
     Dates: start: 20120820, end: 20120823

REACTIONS (1)
  - Urticaria [Recovered/Resolved]
